FAERS Safety Report 10552623 (Version 5)
Quarter: 2015Q3

REPORT INFORMATION
  Report Type: Spontaneous
  Country: US (occurrence: US)
  Receive Date: 20141029
  Receipt Date: 20150720
  Transmission Date: 20151125
  Serious: Yes (Other)
  Sender: FDA-Public Use
  Company Number: US-TAKEDA-2014TUS010448

PATIENT
  Age: 24 Year
  Sex: Female
  Weight: 58.5 kg

DRUGS (12)
  1. IRON [Concomitant]
     Active Substance: IRON
     Indication: COLITIS ULCERATIVE
     Dosage: 1 DF, QD
     Route: 048
  2. MULTIVITAMIN                       /00097801/ [Concomitant]
     Active Substance: VITAMINS
     Dosage: UNK, QD
     Route: 048
  3. PREDNISONE. [Concomitant]
     Active Substance: PREDNISONE
     Indication: COLITIS ULCERATIVE
     Dosage: UNK, QD
     Route: 048
  4. FISH OIL [Concomitant]
     Active Substance: FISH OIL
     Indication: COLITIS ULCERATIVE
     Dosage: UNK, QD
     Route: 048
  5. CALCIUM WITH VITAMIN D             /00944201/ [Concomitant]
     Active Substance: CALCIUM\VITAMIN D
  6. CIPRO                              /00697201/ [Concomitant]
     Active Substance: CIPROFLOXACIN
     Indication: CHOLANGITIS SCLEROSING
  7. URSO [Concomitant]
     Active Substance: URSODIOL
     Indication: CHOLANGITIS SCLEROSING
     Dosage: 250 MG, AT BED
     Route: 048
     Dates: start: 201308
  8. ENTYVIO [Suspect]
     Active Substance: VEDOLIZUMAB
     Dosage: 300 MG, SECOND DOSE
     Route: 042
  9. ENTYVIO [Suspect]
     Active Substance: VEDOLIZUMAB
     Dosage: 300 MG, THIRD DOSE, IN 250 ML NS OVER 30 MINUTES
     Route: 042
     Dates: start: 20141001
  10. CLARITIN [Concomitant]
     Active Substance: LORATADINE
     Indication: PREMEDICATION
     Dosage: 10 MG, UNK
     Route: 048
  11. ENTYVIO [Suspect]
     Active Substance: VEDOLIZUMAB
     Indication: COLITIS ULCERATIVE
     Dosage: 300 MG, FIRST DOSE
     Route: 042
     Dates: start: 20140820, end: 20140820
  12. ACETAMINOPHEN. [Concomitant]
     Active Substance: ACETAMINOPHEN
     Indication: PREMEDICATION
     Dosage: 1000 MG, UNK
     Route: 048

REACTIONS (4)
  - Nausea [Not Recovered/Not Resolved]
  - Alanine aminotransferase increased [Recovered/Resolved]
  - Abdominal pain upper [Recovering/Resolving]
  - Pruritus [Recovered/Resolved]

NARRATIVE: CASE EVENT DATE: 201410
